FAERS Safety Report 24342991 (Version 1)
Quarter: 2024Q3

REPORT INFORMATION
  Report Type: Spontaneous
  Country: US (occurrence: None)
  Receive Date: 20240919
  Receipt Date: 20240919
  Transmission Date: 20241017
  Serious: Yes (Hospitalization)
  Sender: Public
  Company Number: None

PATIENT
  Age: 27 Year
  Sex: Male

DRUGS (11)
  1. PULMOZYME [Suspect]
     Active Substance: DORNASE ALFA
     Indication: Bronchiectasis
     Route: 055
     Dates: start: 20190119
  2. ALBUTEROL SULFATE [Concomitant]
     Active Substance: ALBUTEROL SULFATE
  3. BOOSTRIX INJ [Concomitant]
  4. FAMOTIDINE SUS [Concomitant]
  5. FLUOCINONIDE CRE [Concomitant]
     Dosage: OTHER QUANTITY : 0.05%;?
  6. PEPCID [Concomitant]
     Active Substance: FAMOTIDINE
  7. PULMOZYME SOL [Concomitant]
  8. SYMBICORT 160-4.5 [Concomitant]
  9. SYMBICORT AER 80-4.5 [Concomitant]
  10. TAMSULOSIN [Concomitant]
     Active Substance: TAMSULOSIN
  11. ITRIAMCINOLON CRE [Concomitant]
     Dosage: OTHER QUANTITY : 0.025%;?

REACTIONS (1)
  - Pneumonia [None]

NARRATIVE: CASE EVENT DATE: 20240918
